FAERS Safety Report 5089093-9 (Version None)
Quarter: 2006Q3

REPORT INFORMATION
  Report Type: 
  Country: None (occurrence: None)
  Receive Date: 20060822
  Receipt Date: 20060803
  Transmission Date: 20061208
  Serious: Yes (Hospitalization)
  Sender: FDA-Public Use
  Company Number: GB200608000571

PATIENT
  Sex: Female

DRUGS (3)
  1. HUMALOG [Suspect]
     Indication: DIABETES MELLITUS INSULIN-DEPENDENT
     Dosage: 3/D
  2. HUMALOG MIX 75/25 [Suspect]
     Dosage: 3/D, UBCUTANEOUS
     Route: 058
     Dates: start: 20051101
  3. INSULIN GLARGINE (INSULIN GLARGINE) [Concomitant]

REACTIONS (3)
  - DIABETES MELLITUS INADEQUATE CONTROL [None]
  - HYPOGLYCAEMIA [None]
  - WRONG DRUG ADMINISTERED [None]
